FAERS Safety Report 14523592 (Version 3)
Quarter: 2018Q1

REPORT INFORMATION
  Report Type: Spontaneous
  Country: HR (occurrence: HR)
  Receive Date: 20180212
  Receipt Date: 20180321
  Transmission Date: 20180509
  Serious: Yes (Hospitalization, Other)
  Sender: FDA-Public Use
  Company Number: HR-009507513-1705HRV003518

PATIENT
  Age: 76 Year
  Sex: Male

DRUGS (12)
  1. SIMVASTATIN. [Suspect]
     Active Substance: SIMVASTATIN
     Dosage: 20 MG, UNK (FOR MORE THAN 5 YEARS)
     Route: 048
  2. AMLODIPINE [Suspect]
     Active Substance: AMLODIPINE BESYLATE
     Dosage: 10 MG, UNK (FOR TWO YEARS)
  3. THERAPY UNSPECIFIED [Suspect]
     Active Substance: UNSPECIFIED INGREDIENT
     Dosage: 20 MG, UNK (FOR MORE THAN 5 YEARS)
     Route: 048
  4. ASPIRIN. [Suspect]
     Active Substance: ASPIRIN
     Dosage: 100 MG, QD (FOR MORE THAN TEN YEARS)
  5. ROPINIROLE. [Suspect]
     Active Substance: ROPINIROLE
     Dosage: 8 MG, UNK
  6. ENTACAPONE. [Suspect]
     Active Substance: ENTACAPONE
     Dosage: UNK, UNK (FOR 8 YEARS)
  7. PERINDOPRIL [Suspect]
     Active Substance: PERINDOPRIL
     Dosage: 10 MG, UNK (FOR TWO YEARS)
  8. APO LEVOCARB [Concomitant]
     Active Substance: CARBIDOPA\LEVODOPA
     Dosage: FOR 8 YEARS
  9. ROPINIROLE. [Suspect]
     Active Substance: ROPINIROLE
     Dosage: 12 MG, UNK
  10. GLIMEPIRIDE. [Suspect]
     Active Substance: GLIMEPIRIDE
     Dosage: 4 MG, QD (FOR MORE THAN 5 YEARS)
  11. ROPINIROLE. [Suspect]
     Active Substance: ROPINIROLE
     Indication: PARKINSONISM
     Dosage: 10 MG, UNK (FOR MORE THAN ONE YEAR)
  12. DICLOFENAC [Suspect]
     Active Substance: DICLOFENAC
     Indication: BACK PAIN
     Dosage: 75 MG, DAILY
     Route: 030

REACTIONS (2)
  - Pancreatitis acute [Recovered/Resolved]
  - Extrapyramidal disorder [Unknown]

NARRATIVE: CASE EVENT DATE: 20110612
